FAERS Safety Report 8417164-5 (Version None)
Quarter: 2012Q2

REPORT INFORMATION
  Report Type: 
  Country: None (occurrence: None)
  Receive Date: 20120606
  Receipt Date: 20120601
  Transmission Date: 20120825
  Serious: Yes (Other)
  Sender: FDA-Public Use
  Company Number: US-PFIZER INC-2011179979

PATIENT
  Sex: Male
  Weight: 86.168 kg

DRUGS (5)
  1. DILANTIN [Suspect]
     Dosage: 100 MG, 3X/DAY
     Route: 048
  2. SOTALOL [Concomitant]
     Indication: ARRHYTHMIA
     Dosage: 80 MG, 2X/DAY
  3. DILANTIN [Suspect]
     Indication: GRAND MAL CONVULSION
     Dosage: 100 MG, 4X/DAY
     Route: 048
  4. DILANTIN [Suspect]
     Dosage: 100MG IN MORNING AND 200MG AT NIGHT TWO TIMES A DAY
  5. PHENOBARBITAL [Concomitant]
     Indication: GRAND MAL CONVULSION
     Dosage: 30 MG, 2X/DAY

REACTIONS (2)
  - ASTHENIA [None]
  - MACROCYTOSIS [None]
